FAERS Safety Report 23248616 (Version 1)
Quarter: 2023Q4

REPORT INFORMATION
  Report Type: Spontaneous
  Country: AT (occurrence: AT)
  Receive Date: 20231201
  Receipt Date: 20231201
  Transmission Date: 20240109
  Serious: Yes (Life-Threatening, Hospitalization)
  Sender: FDA-Public Use
  Company Number: None

PATIENT
  Age: 62 Year
  Sex: Male
  Weight: 120 kg

DRUGS (3)
  1. NEBIVOLOL [Interacting]
     Active Substance: NEBIVOLOL
     Indication: Product used for unknown indication
     Dosage: FOR YEARS
  2. OZEMPIC [Interacting]
     Active Substance: SEMAGLUTIDE
     Dosage: 1 MG
     Dates: start: 20230921, end: 20230921
  3. OZEMPIC [Interacting]
     Active Substance: SEMAGLUTIDE
     Indication: Product used for unknown indication
     Dosage: 0.5 MG
     Dates: start: 20230820, end: 20230920

REACTIONS (5)
  - Cardiogenic shock [Recovered/Resolved]
  - Sepsis [Recovered/Resolved]
  - Cholecystitis acute [Recovered/Resolved]
  - BRASH syndrome [Recovered/Resolved]
  - Diarrhoea [Recovered/Resolved]

NARRATIVE: CASE EVENT DATE: 20230921
